FAERS Safety Report 5238039-9 (Version None)
Quarter: 2007Q1

REPORT INFORMATION
  Report Type: 
  Country: None (occurrence: None)
  Receive Date: 20070214
  Receipt Date: 20070208
  Transmission Date: 20070707
  Serious: Yes (Hospitalization)
  Sender: FDA-Public Use
  Company Number: JP-PFIZER INC-2007010896

PATIENT
  Sex: Male
  Weight: 60 kg

DRUGS (8)
  1. ATARAX [Suspect]
     Indication: RESTLESSNESS
     Route: 055
     Dates: start: 20070129, end: 20070129
  2. ADALAT [Concomitant]
     Route: 048
  3. VALSARTAN [Concomitant]
     Route: 048
  4. CALCIUM CARBONATE [Concomitant]
     Route: 048
  5. MAINTATE [Concomitant]
     Route: 048
  6. DIGOSIN [Concomitant]
     Route: 048
  7. METOPROLOL TARTRATE [Concomitant]
     Route: 048
  8. ROHYPNOL [Concomitant]
     Route: 048

REACTIONS (1)
  - VENTRICULAR FIBRILLATION [None]
